FAERS Safety Report 9583212 (Version 1)
Quarter: 2013Q4

REPORT INFORMATION
  Report Type: Spontaneous
  Country: US (occurrence: US)
  Receive Date: 20131002
  Receipt Date: 20131002
  Transmission Date: 20140711
  Serious: No
  Sender: FDA-Public Use
  Company Number: US-AMGEN-USASP2013045681

PATIENT
  Age: 46 Year
  Sex: Female
  Weight: 86.17 kg

DRUGS (5)
  1. ENBREL [Suspect]
     Indication: PRODUCT USED FOR UNKNOWN INDICATION
     Dosage: 50 MG, QWK
     Route: 058
  2. CELEBREX [Concomitant]
     Dosage: 100 MG, UNK
  3. LOSARTAN HCT [Concomitant]
     Dosage: 100-12.5 UNK, UNK
  4. NEXIUM                             /01479302/ [Concomitant]
     Dosage: 40 MG, UNK
  5. POTASSIUM [Concomitant]
     Dosage: 75 MG, UNK

REACTIONS (4)
  - Diarrhoea [Recovered/Resolved]
  - Pyrexia [Recovered/Resolved]
  - Injection site erythema [Recovered/Resolved]
  - Injection site rash [Recovered/Resolved]
